FAERS Safety Report 7366188-8 (Version None)
Quarter: 2011Q1

REPORT INFORMATION
  Report Type: 
  Country: None (occurrence: None)
  Receive Date: 20110322
  Receipt Date: 20110308
  Transmission Date: 20110831
  Serious: Yes (Other)
  Sender: FDA-Public Use
  Company Number: US-RANBAXY-2011RR-42926

PATIENT
  Sex: Male

DRUGS (2)
  1. LEVAQUIN [Suspect]
     Indication: PROSTATE INFECTION
     Dosage: 500 MG, UNK
     Route: 048
     Dates: start: 20000101
  2. CIPROFLOXACIN [Suspect]
     Indication: INFECTION
     Dosage: 500 MG, UNK
     Route: 048

REACTIONS (6)
  - JOINT INJURY [None]
  - LIMB INJURY [None]
  - ROTATOR CUFF SYNDROME [None]
  - TENDONITIS [None]
  - TENDON INJURY [None]
  - ARTHROPATHY [None]
